FAERS Safety Report 9734358 (Version 3)
Quarter: 2015Q4

REPORT INFORMATION
  Report Type: Report from Study
  Country: US (occurrence: US)
  Receive Date: 20131206
  Receipt Date: 20151123
  Transmission Date: 20160305
  Serious: Yes (Other)
  Sender: FDA-Public Use
  Company Number: US-ROCHE-1310657

PATIENT

DRUGS (8)
  1. RITONAVIR. [Suspect]
     Active Substance: RITONAVIR
     Indication: CHRONIC HEPATITIS C
     Route: 065
  2. ABT-450 (HCV PROTEASE INHIBITOR) [Suspect]
     Active Substance: PARITAPREVIR
     Indication: CHRONIC HEPATITIS C
     Route: 065
  3. ABT-333 [Suspect]
     Active Substance: DASABUVIR
     Indication: CHRONIC HEPATITIS C
     Route: 065
  4. RIBAVIRIN. [Suspect]
     Active Substance: RIBAVIRIN
     Dosage: DIVIDED INTO 600 MG IF BODY WEIGHT IS LESS THAN 75 KG FOR 8,12,24 WEEKS
     Route: 065
  5. ABT-450 (HCV PROTEASE INHIBITOR) [Suspect]
     Active Substance: PARITAPREVIR
     Route: 065
  6. ABT-450 (HCV PROTEASE INHIBITOR) [Suspect]
     Active Substance: PARITAPREVIR
     Route: 065
  7. ABT-267 (HCV NS5A INHIBITOR) [Suspect]
     Active Substance: OMBITASVIR
     Indication: CHRONIC HEPATITIS C
     Route: 065
  8. RIBAVIRIN. [Suspect]
     Active Substance: RIBAVIRIN
     Indication: CHRONIC HEPATITIS C
     Dosage: DIVIDE INTO DOSES OF 400 MG ABD 600 MG FOR 8, 12, OR 24 WEEKS
     Route: 065

REACTIONS (17)
  - Blood triglycerides increased [Unknown]
  - Fatigue [Recovered/Resolved]
  - Alanine aminotransferase abnormal [Recovered/Resolved]
  - Cough [Unknown]
  - Alanine aminotransferase increased [Unknown]
  - Blood glucose increased [Unknown]
  - Arthralgia [Recovered/Resolved]
  - Blood bilirubin abnormal [Recovered/Resolved]
  - Nausea [Unknown]
  - Lymphocyte count decreased [Unknown]
  - Insomnia [Unknown]
  - Asthenia [Recovered/Resolved]
  - Blood bilirubin increased [Unknown]
  - Headache [Unknown]
  - White blood cell count increased [Unknown]
  - Diarrhoea [Unknown]
  - Blood sodium decreased [Unknown]
